FAERS Safety Report 4509572-X (Version None)
Quarter: 2004Q4

REPORT INFORMATION
  Report Type: 
  Country: None (occurrence: None)
  Receive Date: 20041119
  Receipt Date: 20041028
  Transmission Date: 20050328
  Serious: Yes (Death, Other)
  Sender: FDA-Public Use
  Company Number: US_0410107508

PATIENT
  Age: 19 Year
  Sex: Male
  Weight: 75 kg

DRUGS (2)
  1. PROZAC [Suspect]
     Indication: MENTAL DISORDER
  2. FLUOXETINE [Concomitant]

REACTIONS (5)
  - COMPLETED SUICIDE [None]
  - CONDITION AGGRAVATED [None]
  - INJURY ASPHYXIATION [None]
  - MENTAL DISORDER [None]
  - THERAPY NON-RESPONDER [None]
